FAERS Safety Report 7029947-7 (Version None)
Quarter: 2010Q4

REPORT INFORMATION
  Report Type: 
  Country: None (occurrence: None)
  Receive Date: 20101006
  Receipt Date: 20100923
  Transmission Date: 20110411
  Serious: Yes (Life-Threatening, Hospitalization, Other)
  Sender: FDA-Public Use
  Company Number: IT-ELI_LILLY_AND_COMPANY-IT201009006225

PATIENT
  Sex: Female

DRUGS (7)
  1. FORTEO [Suspect]
     Indication: OSTEOPOROSIS
     Dosage: 20 UG, DAILY (1/D)
     Route: 058
     Dates: start: 20100803, end: 20100912
  2. CALCIUM CARBONATE [Concomitant]
     Dosage: 500 MG, UNKNOWN
     Route: 048
  3. CHOLECALCIFEROL [Concomitant]
     Dosage: 10000 IU, UNKNOWN
     Route: 048
  4. OMEPRAZOLE [Concomitant]
     Dosage: UNK, UNKNOWN
     Route: 048
  5. CITALOPRAM HYDROBROMIDE [Concomitant]
     Indication: DEPRESSION
     Dosage: UNK, UNKNOWN
     Route: 048
     Dates: start: 20100904, end: 20100911
  6. LEVOPRAID [Concomitant]
     Dosage: UNK, UNKNOWN
     Route: 048
  7. LASITONE [Concomitant]
     Dosage: UNK, UNKNOWN
     Route: 048

REACTIONS (2)
  - DEPRESSION [None]
  - SUICIDE ATTEMPT [None]
